FAERS Safety Report 19902441 (Version 1)
Quarter: 2021Q3

REPORT INFORMATION
  Report Type: Spontaneous
  Country: UA (occurrence: UA)
  Receive Date: 20210930
  Receipt Date: 20210930
  Transmission Date: 20211014
  Serious: Yes (Hospitalization)
  Sender: FDA-Public Use
  Company Number: UA-TEVA-2021-UA-1958187

PATIENT
  Age: 19 Year
  Sex: Male

DRUGS (3)
  1. METHOTREXATE. [Suspect]
     Active Substance: METHOTREXATE
     Indication: PRIMARY MEDIASTINAL LARGE B-CELL LYMPHOMA
     Dosage: ADMINISTERED TWO CYCLES OF 3.5G/M2 AFTER NEUTROPENIA RESOLVED.
     Route: 065
  2. RITUXIMAB. [Concomitant]
     Active Substance: RITUXIMAB
     Indication: PRIMARY MEDIASTINAL LARGE B-CELL LYMPHOMA
     Dosage: ADMINISTERED TWO CYCLES OF 0.375G/M2.
  3. PEG?IFN [Suspect]
     Active Substance: PEGINTERFERON ALFA-2A OR PEGINTERFERON ALFA-2B
     Indication: HEPATITIS B
     Route: 065

REACTIONS (3)
  - Neutropenia [Recovered/Resolved]
  - Epilepsy [Recovered/Resolved]
  - Neutropenic infection [Recovered/Resolved]
